FAERS Safety Report 10145832 (Version 1)
Quarter: 2014Q2

REPORT INFORMATION
  Report Type: Spontaneous
  Country: US (occurrence: None)
  Receive Date: 20140430
  Receipt Date: 20140430
  Transmission Date: 20141212
  Serious: Yes (Hospitalization)
  Sender: FDA-Public Use
  Company Number: None

PATIENT
  Age: 60 Year
  Sex: Female

DRUGS (1)
  1. GLEEVEC (IMATINIB) TABLET 400MG [Suspect]
     Indication: CHRONIC MYELOID LEUKAEMIA
     Dosage: 100MG 3 DAILY PO
     Route: 048
     Dates: start: 20131115, end: 20140429

REACTIONS (1)
  - Anaemia [None]
